FAERS Safety Report 5782686-2 (Version None)
Quarter: 2008Q2

REPORT INFORMATION
  Report Type: 
  Country: None (occurrence: None)
  Receive Date: 20080619
  Receipt Date: 20080613
  Transmission Date: 20081010
  Serious: Yes (Hospitalization)
  Sender: FDA-Public Use
  Company Number: 2008SP011211

PATIENT
  Sex: Male
  Weight: 95.709 kg

DRUGS (1)
  1. PROVENTIL-HFA [Suspect]
     Indication: ASTHMA
     Dosage: ;UNK;PO
     Route: 048

REACTIONS (6)
  - DEVICE MALFUNCTION [None]
  - PULSE ABSENT [None]
  - RESPIRATORY ARREST [None]
  - THERAPEUTIC PRODUCT INEFFECTIVE [None]
  - UNDERDOSE [None]
  - WHEEZING [None]
